FAERS Safety Report 18452229 (Version 1)
Quarter: 2020Q4

REPORT INFORMATION
  Report Type: Spontaneous
  Country: US (occurrence: US)
  Receive Date: 20201101
  Receipt Date: 20201101
  Transmission Date: 20210114
  Serious: No
  Sender: FDA-Public Use
  Company Number: None

PATIENT
  Age: 8 Year
  Sex: Female
  Weight: 36 kg

DRUGS (2)
  1. SINGULAIR [Suspect]
     Active Substance: MONTELUKAST SODIUM
     Indication: ASTHMA
     Dates: start: 20201001, end: 20201027
  2. RITILAN ER 10MG [Concomitant]

REACTIONS (2)
  - Tremor [None]
  - Hallucination, auditory [None]

NARRATIVE: CASE EVENT DATE: 20201020
